FAERS Safety Report 16737210 (Version 3)
Quarter: 2020Q2

REPORT INFORMATION
  Report Type: Report from Study
  Country: US (occurrence: US)
  Receive Date: 20190823
  Receipt Date: 20200424
  Transmission Date: 20200713
  Serious: Yes (Other)
  Sender: FDA-Public Use
  Company Number: US-PFIZER INC-2019182357

PATIENT
  Age: 61 Year
  Sex: Female

DRUGS (4)
  1. METHOTREXATE. [Concomitant]
     Active Substance: METHOTREXATE
     Dosage: UNK
  2. XELJANZ XR [Suspect]
     Active Substance: TOFACITINIB CITRATE
     Indication: RHEUMATOID ARTHRITIS
     Dosage: 11 MG, DAILY
     Route: 048
     Dates: start: 2017
  3. AMLODIPINE [Concomitant]
     Active Substance: AMLODIPINE BESYLATE
     Dosage: UNK
  4. XELJANZ XR [Suspect]
     Active Substance: TOFACITINIB CITRATE
     Dosage: 11 MG, DAILY
     Route: 048
     Dates: start: 20190522

REACTIONS (16)
  - Dizziness [Unknown]
  - Influenza like illness [Not Recovered/Not Resolved]
  - Musculoskeletal pain [Unknown]
  - Fatigue [Unknown]
  - Product dose omission [Unknown]
  - Bronchitis [Unknown]
  - Weight decreased [Unknown]
  - Pain [Unknown]
  - Hypotension [Unknown]
  - Therapeutic product effect incomplete [Unknown]
  - Anaemia [Unknown]
  - Osteopenia [Unknown]
  - Depressed mood [Unknown]
  - Sensitivity to weather change [Unknown]
  - Malaise [Unknown]
  - Dyspnoea [Unknown]

NARRATIVE: CASE EVENT DATE: 201905
